FAERS Safety Report 6857244-9 (Version None)
Quarter: 2010Q3

REPORT INFORMATION
  Report Type: 
  Country: None (occurrence: None)
  Receive Date: 20100719
  Receipt Date: 20100709
  Transmission Date: 20110219
  Serious: No
  Sender: FDA-Public Use
  Company Number: US-JNJFOC-20100703749

PATIENT
  Sex: Male
  Weight: 45.36 kg

DRUGS (2)
  1. SANDOZ FENTANYL TRANSDERMAL SYSTEM [Suspect]
     Indication: PRODUCT USED FOR UNKNOWN INDICATION
     Dosage: 25+12.5 UG/HR
     Route: 062
  2. SANDOZ FENTANYL TRANSDERMAL SYSTEM [Suspect]
     Indication: MULTIPLE SCLEROSIS
     Dosage: 25+12.5 UG/HR
     Route: 062

REACTIONS (9)
  - ABNORMAL LOSS OF WEIGHT [None]
  - DRUG DOSE OMISSION [None]
  - DRUG EFFECT DECREASED [None]
  - FALL [None]
  - FEELING JITTERY [None]
  - INJURY [None]
  - MUSCLE STRAIN [None]
  - NAUSEA [None]
  - PAIN [None]
